FAERS Safety Report 7012820-8 (Version None)
Quarter: 2010Q3

REPORT INFORMATION
  Report Type: 
  Country: None (occurrence: None)
  Receive Date: 20100924
  Receipt Date: 20100915
  Transmission Date: 20110219
  Serious: Yes (Hospitalization, Other)
  Sender: FDA-Public Use
  Company Number: B0674676A

PATIENT
  Age: 14 Year
  Sex: Female

DRUGS (9)
  1. LAMICTAL [Suspect]
     Indication: BIPOLAR DISORDER
     Dosage: 25MG PER DAY
     Route: 065
     Dates: start: 20100821, end: 20100905
  2. LAMICTAL [Suspect]
     Dosage: 50MG PER DAY
     Route: 065
     Dates: start: 20100905, end: 20100907
  3. QUETIAPINE [Concomitant]
     Dosage: 200MG PER DAY
     Route: 065
     Dates: start: 20100501
  4. EPIVAL [Concomitant]
     Route: 065
     Dates: start: 20100701
  5. HYDROCORTISONE [Concomitant]
     Route: 042
  6. AMPICILLIN SODIUM/SULBACTAM SODIUM [Concomitant]
     Route: 065
  7. UNKNOWN [Concomitant]
  8. STEROID NASAL SPRAY [Concomitant]
  9. ACETYLCYSTEINE [Concomitant]

REACTIONS (5)
  - HAEMATURIA [None]
  - PYREXIA [None]
  - RASH PUSTULAR [None]
  - STEVENS-JOHNSON SYNDROME [None]
  - TOXIC EPIDERMAL NECROLYSIS [None]
